FAERS Safety Report 8347315-2 (Version None)
Quarter: 2012Q2

REPORT INFORMATION
  Report Type: 
  Country: None (occurrence: None)
  Receive Date: 20120507
  Receipt Date: 20120501
  Transmission Date: 20120825
  Serious: Yes (Death)
  Sender: FDA-Public Use
  Company Number: 2012SP010583

PATIENT

DRUGS (1)
  1. IMPLANON [Suspect]
     Indication: MATERNAL EXPOSURE DURING PREGNANCY
     Dosage: TRPL
     Route: 064

REACTIONS (4)
  - STILLBIRTH [None]
  - MATERNAL DRUGS AFFECTING FOETUS [None]
  - UMBILICAL CORD ABNORMALITY [None]
  - PREMATURE BABY [None]
